FAERS Safety Report 5058442-X (Version None)
Quarter: 2006Q3

REPORT INFORMATION
  Report Type: 
  Country: None (occurrence: None)
  Receive Date: 20060721
  Receipt Date: 20060707
  Transmission Date: 20061208
  Serious: Yes (Death)
  Sender: FDA-Public Use
  Company Number: PHEH2006US08732

PATIENT
  Age: 69 Year
  Sex: Male

DRUGS (2)
  1. EXJADE [Suspect]
     Indication: MYELODYSPLASTIC SYNDROME
     Dosage: 2000 MG, QD
     Route: 048
     Dates: start: 20060608
  2. REVLIMID [Concomitant]
     Dosage: 10 MG, QD
     Route: 048

REACTIONS (2)
  - ABDOMINAL PAIN UPPER [None]
  - SEPTIC SHOCK [None]
